FAERS Safety Report 20140172 (Version 2)
Quarter: 2021Q4

REPORT INFORMATION
  Report Type: Spontaneous
  Country: US (occurrence: US)
  Receive Date: 20211202
  Receipt Date: 20211213
  Transmission Date: 20220303
  Serious: No
  Sender: FDA-Public Use
  Company Number: US-GLAXOSMITHKLINE-US2021245545

PATIENT
  Sex: Female

DRUGS (1)
  1. BENLYSTA [Suspect]
     Active Substance: BELIMUMAB
     Indication: Product used for unknown indication
     Dosage: 200 MG, Z (ONCE WEEK)
     Dates: start: 20211129, end: 20211129

REACTIONS (7)
  - Injection site haemorrhage [Unknown]
  - Injection site injury [Unknown]
  - Injection site pain [Unknown]
  - Incorrect dose administered [Unknown]
  - Product dose omission issue [Unknown]
  - Wrong technique in device usage process [Unknown]
  - Product complaint [Unknown]
